FAERS Safety Report 17336628 (Version 3)
Quarter: 2020Q1

REPORT INFORMATION
  Report Type: Report from Study
  Country: US (occurrence: US)
  Receive Date: 20200128
  Receipt Date: 20200323
  Transmission Date: 20200409
  Serious: Yes (Hospitalization, Other)
  Sender: FDA-Public Use
  Company Number: US-ASTELLAS-2019US040392

PATIENT
  Age: 68 Year
  Sex: Male

DRUGS (4)
  1. ASP2215 [Suspect]
     Active Substance: GILTERITINIB
     Route: 048
  2. ASP2215 [Suspect]
     Active Substance: GILTERITINIB
     Route: 048
  3. ASP2215 [Suspect]
     Active Substance: GILTERITINIB
     Route: 048
     Dates: start: 20200131, end: 20200316
  4. ASP2215 [Suspect]
     Active Substance: GILTERITINIB
     Indication: ACUTE MYELOID LEUKAEMIA
     Route: 048
     Dates: start: 20190924

REACTIONS (8)
  - Diplopia [Recovered/Resolved]
  - Acute myeloid leukaemia [Unknown]
  - Noninfective gingivitis [Unknown]
  - Faecaloma [Recovering/Resolving]
  - Large intestine perforation [Recovering/Resolving]
  - Urinary tract infection [Recovered/Resolved]
  - Stomatitis [Unknown]
  - Prostatomegaly [Recovered/Resolved]

NARRATIVE: CASE EVENT DATE: 20200210
